FAERS Safety Report 8932524 (Version 1)
Quarter: 2012Q4

REPORT INFORMATION
  Report Type: Spontaneous
  Country: US (occurrence: None)
  Receive Date: 20121121
  Receipt Date: 20121121
  Transmission Date: 20130627
  Serious: Yes (Hospitalization, Disabling, Congenital Anomaly)
  Sender: FDA-Public Use
  Company Number: None

PATIENT
  Age: 33 Year
  Sex: Female
  Weight: 104.33 kg

DRUGS (2)
  1. YAZ BAYER [Suspect]
     Indication: CONTRACEPTION
     Dosage: 1 tablet once daily oral
     Route: 048
     Dates: start: 200604, end: 201110
  2. LEVORA WATSON [Suspect]
     Indication: CONTRACEPTION
     Dosage: 1 tablet once daily oral
     Route: 048
     Dates: start: 20111011, end: 20111017

REACTIONS (3)
  - Confusional state [None]
  - Cerebrovascular accident [None]
  - Metrorrhagia [None]
